FAERS Safety Report 8456496-1 (Version None)
Quarter: 2012Q2

REPORT INFORMATION
  Report Type: 
  Country: None (occurrence: None)
  Receive Date: 20120621
  Receipt Date: 20120101
  Transmission Date: 20120825
  Serious: Yes (Hospitalization)
  Sender: FDA-Public Use
  Company Number: AL-GLAXOSMITHKLINE-B0809467A

PATIENT
  Sex: Male

DRUGS (1)
  1. ZANTAC [Suspect]

REACTIONS (1)
  - MYOCARDIAL INFARCTION [None]
